FAERS Safety Report 7585514-8 (Version None)
Quarter: 2011Q2

REPORT INFORMATION
  Report Type: 
  Country: None (occurrence: None)
  Receive Date: 20110624
  Receipt Date: 20110613
  Transmission Date: 20111010
  Serious: Yes (Life-Threatening, Hospitalization, Other)
  Sender: FDA-Public Use
  Company Number: JHP201100223

PATIENT
  Age: 53 Year
  Sex: Male

DRUGS (6)
  1. NOREPINEPHRINE (NOREPINEPHRINE BITARTRATE) [Suspect]
     Indication: HYPOTENSION
  2. LIDOCAINE HYDROCHLORIDE/EPINEPHRINE (EPINEPHRINE, LIDOCAINE HYDROCHLOR [Suspect]
     Indication: LOCAL ANAESTHESIA
     Dosage: 1.5% LIDOCAINE WITH EPINEPHRINE (1:200,000) INSTILLED
  3. PANTOPRAZOLE [Concomitant]
  4. EPINEPHRINE [Suspect]
     Indication: HYPOTENSION
  5. OMEPRAZOLE [Concomitant]
  6. MARCAINE [Suspect]
     Indication: LOCAL ANAESTHESIA
     Dosage: 0.5 % INSTILLED

REACTIONS (9)
  - CARDIOGENIC SHOCK [None]
  - HYPERTENSION [None]
  - TACHYCARDIA [None]
  - VENTRICULAR FIBRILLATION [None]
  - INCORRECT ROUTE OF DRUG ADMINISTRATION [None]
  - PULMONARY OEDEMA [None]
  - VENTRICULAR TACHYCARDIA [None]
  - CARDIAC FAILURE CONGESTIVE [None]
  - CARDIOTOXICITY [None]
